FAERS Safety Report 8921768 (Version 1)
Quarter: 2012Q4

REPORT INFORMATION
  Report Type: 
  Country: FI (occurrence: FI)
  Receive Date: 20121121
  Receipt Date: 20121121
  Transmission Date: 20130627
  Serious: Yes (Hospitalization)
  Sender: FDA-Public Use
  Company Number: SE-MYLANLABS-2012S1023505

PATIENT
  Age: 60 Year
  Sex: Female

DRUGS (6)
  1. METFORMIN [Suspect]
     Indication: TYPE 2 DIABETES MELLITUS
  2. SITAGLIPTIN [Concomitant]
     Indication: TYPE 2 DIABETES MELLITUS
  3. RAMIPRIL [Concomitant]
     Indication: BLOOD PRESSURE INCREASED
  4. ATORVASTATIN [Concomitant]
     Indication: HYPERCHOLESTEROLAEMIA
  5. CEFALEXIN [Concomitant]
     Indication: DIVERTICULITIS
  6. METRONIDAZOLE [Concomitant]
     Indication: DIVERTICULITIS

REACTIONS (4)
  - Lactic acidosis [Recovered/Resolved]
  - Renal failure [Recovered/Resolved]
  - Pneumonia aspiration [Unknown]
  - Pancreatic disorder [Unknown]
